FAERS Safety Report 17237647 (Version 1)
Quarter: 2020Q1

REPORT INFORMATION
  Report Type: Report from Study
  Country: BE (occurrence: BE)
  Receive Date: 20200106
  Receipt Date: 20200106
  Transmission Date: 20200409
  Serious: Yes (Hospitalization, Other)
  Sender: FDA-Public Use
  Company Number: BE-BAYER-2020-001849

PATIENT
  Age: 74 Year
  Sex: Female
  Weight: 74 kg

DRUGS (7)
  1. TRASYLOL [Suspect]
     Active Substance: APROTININ
     Indication: AORTIC VALVE REPAIR
     Dosage: PUMP PRIMING DOSE 1 MILLION LIU
     Route: 065
  2. PLATELETS [Concomitant]
     Active Substance: HUMAN PLATELET, ALLOGENIC
     Indication: PLATELET DISORDER
     Dosage: UNK 300
     Route: 065
  3. FRESH FROZEN PLASMA [Concomitant]
     Active Substance: HUMAN PLASMA
     Indication: TRANSFUSION
     Dosage: UNK
     Route: 065
     Dates: start: 20191216
  4. TRASYLOL [Suspect]
     Active Substance: APROTININ
     Indication: AORTIC VALVE REPAIR
     Dosage: 300 MILILITRE EVERY DAY(S) LOADING DOSE 1 MILLION KIU
     Route: 065
     Dates: start: 20191216, end: 20191216
  5. RED BLOOD CELLS [Concomitant]
     Active Substance: HUMAN RED BLOOD CELL
     Indication: PACKED RED BLOOD CELL TRANSFUSION
     Dosage: UNK 600
     Route: 065
     Dates: start: 20191216
  6. TRASYLOL [Suspect]
     Active Substance: APROTININ
     Indication: AORTIC VALVE REPAIR
     Dosage: TOTAL CONTINUOUS INFUSION DOSE 1 MILLION KIU
     Route: 065
  7. HEPARIN [Concomitant]
     Active Substance: HEPARIN SODIUM
     Indication: ANTICOAGULANT THERAPY
     Dosage: TOTAL HEPARIN DOSAGE DURING SURGERY =27
     Route: 065
     Dates: start: 20191216

REACTIONS (1)
  - Blood creatinine increased [Recovering/Resolving]

NARRATIVE: CASE EVENT DATE: 20191223
